FAERS Safety Report 8740594 (Version 2)
Quarter: 2013Q1

REPORT INFORMATION
  Report Type: Spontaneous
  Country: US (occurrence: US)
  Receive Date: 20120823
  Receipt Date: 20130115
  Transmission Date: 20140127
  Serious: No
  Sender: FDA-Public Use
  Company Number: US-009507513-1208USA008652

PATIENT
  Age: 58 Year
  Sex: Male

DRUGS (2)
  1. PEGINTRON [Suspect]
     Indication: HEPATITIS C
     Dosage: 120 MICROGRAM, QW
     Dates: start: 20120731
  2. RIBAPAK [Suspect]
     Dosage: 600 MG, BID

REACTIONS (4)
  - Skin ulcer [Recovered/Resolved]
  - Localised infection [Recovered/Resolved]
  - Localised infection [Not Recovered/Not Resolved]
  - Fatigue [Not Recovered/Not Resolved]
